FAERS Safety Report 7200170-6 (Version None)
Quarter: 2010Q4

REPORT INFORMATION
  Report Type: 
  Country: None (occurrence: None)
  Receive Date: 20101215
  Receipt Date: 20101201
  Transmission Date: 20110411
  Serious: No
  Sender: FDA-Public Use
  Company Number: 2010-01027

PATIENT
  Age: 35 Year
  Sex: Male
  Weight: 106.5953 kg

DRUGS (7)
  1. ZICAM COLD REMEDY NASAL GEL [Suspect]
     Dosage: 1 DOSE
     Dates: start: 20101122, end: 20101122
  2. VYTORIN [Concomitant]
  3. BUSPIRONE HCL [Concomitant]
  4. FLUVOXAMINE MALEATE [Concomitant]
  5. XANAX [Concomitant]
  6. MENS MULTIVITAMIN [Concomitant]
  7. FISH OIL [Concomitant]

REACTIONS (4)
  - AGEUSIA [None]
  - ANOSMIA [None]
  - NASAL DISCOMFORT [None]
  - SINUS CONGESTION [None]
